FAERS Safety Report 7444942-1 (Version None)
Quarter: 2011Q2

REPORT INFORMATION
  Report Type: 
  Country: None (occurrence: None)
  Receive Date: 20110429
  Receipt Date: 20110426
  Transmission Date: 20111010
  Serious: Yes (Death)
  Sender: FDA-Public Use
  Company Number: PHHY2010BR82540

PATIENT
  Sex: Female

DRUGS (2)
  1. STALEVO 100 [Suspect]
     Dosage: 100/25/200 MG
  2. TRILEPTAL [Suspect]
     Dosage: 300 MG

REACTIONS (1)
  - DEATH [None]
